FAERS Safety Report 11906323 (Version 1)
Quarter: 2016Q1

REPORT INFORMATION
  Report Type: Spontaneous
  Country: US (occurrence: None)
  Receive Date: 20160108
  Receipt Date: 20160108
  Transmission Date: 20160526
  Serious: Yes (Other)
  Sender: FDA-Public Use
  Company Number: None

PATIENT
  Age: 48 Year
  Sex: Female
  Weight: 106.6 kg

DRUGS (1)
  1. ENTYVIO [Suspect]
     Active Substance: VEDOLIZUMAB
     Dosage: EVERY 8 WEEKS?INTO A VEIN
     Route: 042
     Dates: start: 20141201, end: 20160107

REACTIONS (2)
  - Headache [None]
  - Contusion [None]

NARRATIVE: CASE EVENT DATE: 20151204
